FAERS Safety Report 14656796 (Version 1)
Quarter: 2018Q1

REPORT INFORMATION
  Report Type: Spontaneous
  Country: US (occurrence: US)
  Receive Date: 20180319
  Receipt Date: 20180319
  Transmission Date: 20180509
  Serious: No
  Sender: FDA-Public Use
  Company Number: US-SA-2017SA075642

PATIENT
  Age: 51 Year
  Sex: Female

DRUGS (1)
  1. NASACORT ALLERGY 24HR [Suspect]
     Active Substance: TRIAMCINOLONE ACETONIDE
     Indication: MULTIPLE ALLERGIES
     Dosage: NASAL SPRAY DOSE:2 UNIT(S)
     Route: 065

REACTIONS (4)
  - Intentional product misuse [Unknown]
  - Condition aggravated [Unknown]
  - Constipation [Unknown]
  - Feeling abnormal [Unknown]
